FAERS Safety Report 4868899-2 (Version None)
Quarter: 2005Q4

REPORT INFORMATION
  Report Type: 
  Country: None (occurrence: None)
  Receive Date: 20051223
  Receipt Date: 20051213
  Transmission Date: 20060501
  Serious: Yes (Hospitalization)
  Sender: FDA-Public Use
  Company Number: 220546

PATIENT
  Age: 61 Year
  Sex: Male
  Weight: 80 kg

DRUGS (11)
  1. AVASTIN [Suspect]
     Indication: COLORECTAL CANCER METASTATIC
     Dosage: 75 MG/KG, Q3W, INTRAVENOUS
     Route: 042
     Dates: start: 20051024
  2. CAPECITABINE (CAPECITABINE) [Suspect]
     Indication: COLORECTAL CANCER METASTATIC
     Dosage: 2500 MG QD ORAL
     Route: 048
     Dates: start: 20051024
  3. MITOMYCIN [Suspect]
     Indication: COLORECTAL CANCER METASTATIC
     Dosage: 7 MG/M2
     Dates: start: 20051024
  4. DMSO (DIMETHYL SULFOXIDE) [Concomitant]
  5. PANTOPRAZOLE [Concomitant]
  6. OXYCONTIN [Concomitant]
  7. AMITRIPTYLINE HCL [Concomitant]
  8. PANADOL (ACETAMINOPHEN) [Concomitant]
  9. FLUCLOXACILLIN [Concomitant]
  10. MORPHINE [Concomitant]
  11. COLOXYL WITH SENNA (DOCUSATE SODIUM, SENNOSIDES) [Concomitant]

REACTIONS (1)
  - EXTRAVASATION [None]
